FAERS Safety Report 8918226 (Version 2)
Quarter: 2013Q3

REPORT INFORMATION
  Report Type: Spontaneous
  Country: US (occurrence: US)
  Receive Date: 20121120
  Receipt Date: 20130904
  Transmission Date: 20140515
  Serious: No
  Sender: FDA-Public Use
  Company Number: US-ASTRAZENECA-2012SE24762

PATIENT
  Age: 48 Year
  Sex: Female
  Weight: 58.1 kg

DRUGS (5)
  1. NEXIUM [Suspect]
     Indication: GASTROOESOPHAGEAL REFLUX DISEASE
     Route: 048
     Dates: start: 2010, end: 20130809
  2. ATENOLOL CHLORIDE [Suspect]
     Indication: BLOOD PRESSURE ABNORMAL
     Route: 065
     Dates: start: 2009
  3. ATENOLOL CHLORIDE [Suspect]
     Indication: BLOOD PRESSURE ABNORMAL
     Route: 065
  4. UNSPECIFIED MEDICATION [Suspect]
     Route: 065
  5. NEURONTIN [Concomitant]
     Indication: LIMB DISCOMFORT

REACTIONS (4)
  - Pain [Unknown]
  - Gastrooesophageal reflux disease [Not Recovered/Not Resolved]
  - Sleep disorder due to a general medical condition [Not Recovered/Not Resolved]
  - Drug dose omission [Unknown]
